FAERS Safety Report 9549780 (Version 1)
Quarter: 2013Q3

REPORT INFORMATION
  Report Type: Spontaneous
  Country: US (occurrence: US)
  Receive Date: 20130924
  Receipt Date: 20130924
  Transmission Date: 20140515
  Serious: No
  Sender: FDA-Public Use
  Company Number: US-ALLERGAN-1310251US

PATIENT
  Age: 91 Year
  Sex: Female

DRUGS (3)
  1. LUMIGAN 0.01% [Suspect]
     Indication: GLAUCOMA
     Dosage: 2 GTT, QD
     Route: 047
     Dates: start: 20130509
  2. HTN MEDICATION NOS [Concomitant]
     Indication: HYPERTENSION
     Dosage: UNK
  3. TRIAMCINOLONE ACETONIDE [Concomitant]
     Route: 061

REACTIONS (8)
  - Urticaria [Unknown]
  - Urticaria [Unknown]
  - Urticaria [Unknown]
  - Urticaria [Unknown]
  - Pruritus [Unknown]
  - Anxiety [Unknown]
  - Nervousness [Unknown]
  - Rash [Unknown]
